FAERS Safety Report 8581504-7 (Version None)
Quarter: 2012Q2

REPORT INFORMATION
  Report Type: 
  Country: None (occurrence: None)
  Receive Date: 20120423
  Receipt Date: 20100326
  Transmission Date: 20120825
  Serious: Yes (Other)
  Sender: FDA-Public Use
  Company Number: PHHY2010US18708

PATIENT
  Age: 76 Year
  Sex: Female

DRUGS (18)
  1. ATENOLOL [Concomitant]
  2. VITAMIN D [Concomitant]
  3. LASIX (FUROSMIDE) [Concomitant]
  4. LANOXIN [Concomitant]
  5. MULTIVITAMINS (ASCORBIC ACID, ERGOCALCIFEROL, FOLIC ACID, NICOTINAMIDE [Concomitant]
  6. VICODIN [Concomitant]
  7. ZYVOX [Concomitant]
  8. NEXIUM [Concomitant]
  9. VIDAZA [Concomitant]
  10. KLOR-CON [Concomitant]
  11. EXJADE [Suspect]
     Indication: IRON OVERLOAD
     Dosage: 1500 MG, QD, ORAL; DOSE DECREASED TO ONEPILL DAILY; 2 PILLS, DAILY, 3 PILLS DAILY, 2 PILLS DAILY
     Dates: start: 20071001, end: 20081101
  12. EXJADE [Suspect]
     Indication: MYELODYSPLASTIC SYNDROME
     Dosage: 1500 MG, QD, ORAL; DOSE DECREASED TO ONEPILL DAILY; 2 PILLS, DAILY, 3 PILLS DAILY, 2 PILLS DAILY
     Dates: start: 20071001, end: 20081101
  13. EXJADE [Suspect]
     Indication: IRON OVERLOAD
     Dosage: 1500 MG, QD, ORAL; DOSE DECREASED TO ONEPILL DAILY; 2 PILLS, DAILY, 3 PILLS DAILY, 2 PILLS DAILY
     Dates: end: 20100201
  14. EXJADE [Suspect]
     Indication: MYELODYSPLASTIC SYNDROME
     Dosage: 1500 MG, QD, ORAL; DOSE DECREASED TO ONEPILL DAILY; 2 PILLS, DAILY, 3 PILLS DAILY, 2 PILLS DAILY
     Dates: end: 20100201
  15. NEURONTIN [Concomitant]
  16. CALCIUM CARBONATE [Concomitant]
  17. CARAFAATE (SUCRALFATE) [Concomitant]
  18. FOSAMAX [Concomitant]

REACTIONS (2)
  - ABDOMINAL PAIN [None]
  - NAUSEA [None]
